FAERS Safety Report 9127233 (Version 1)
Quarter: 2013Q1

REPORT INFORMATION
  Report Type: Spontaneous
  Country: US (occurrence: US)
  Receive Date: 20130228
  Receipt Date: 20130228
  Transmission Date: 20140127
  Serious: No
  Sender: FDA-Public Use
  Company Number: US-GLAXOSMITHKLINE-A0962935A

PATIENT
  Age: 39 Year
  Sex: Female

DRUGS (6)
  1. LAMOTRIGINE [Suspect]
     Indication: BIPOLAR DISORDER
     Dosage: 200MG PER DAY
     Route: 048
     Dates: start: 201003, end: 201004
  2. KLOR CON [Concomitant]
  3. LASIX [Concomitant]
  4. SEROQUEL [Concomitant]
  5. SYNTHROID [Concomitant]
  6. CLONAZEPAM [Concomitant]

REACTIONS (2)
  - Exfoliative rash [Recovered/Resolved]
  - Rash erythematous [Unknown]
